FAERS Safety Report 5423216-4 (Version None)
Quarter: 2007Q3

REPORT INFORMATION
  Report Type: 
  Country: None (occurrence: None)
  Receive Date: 20070730
  Receipt Date: 20070426
  Transmission Date: 20080115
  Serious: Yes (Life-Threatening, Other)
  Sender: FDA-Public Use
  Company Number: 200710180BWH

PATIENT
  Age: 32 Year
  Sex: Female
  Weight: 81.1939 kg

DRUGS (2)
  1. AVELOX [Suspect]
     Indication: SINUSITIS
     Dosage: 400 MG, QD, ORAL
     Route: 048
     Dates: start: 20040101
  2. ALLEGRA-D  (FEXOFENADINE HCL / PSEUDOEPHEDRINE [Concomitant]

REACTIONS (13)
  - ANAPHYLACTIC REACTION [None]
  - DYSPNOEA [None]
  - ERYTHEMA [None]
  - HEART RATE INCREASED [None]
  - HYPOKALAEMIA [None]
  - HYPOTENSION [None]
  - LOSS OF CONSCIOUSNESS [None]
  - NAUSEA [None]
  - PALPITATIONS [None]
  - PHARYNGEAL OEDEMA [None]
  - TINNITUS [None]
  - VOMITING [None]
  - WHEEZING [None]
